APPROVED DRUG PRODUCT: FLURBIPROFEN
Active Ingredient: FLURBIPROFEN
Strength: 100MG
Dosage Form/Route: TABLET;ORAL
Application: A075058 | Product #002
Applicant: SUN PHARMACEUTICAL INDUSTRIES INC
Approved: Apr 27, 2001 | RLD: No | RS: No | Type: DISCN